FAERS Safety Report 5310499-4 (Version None)
Quarter: 2007Q2

REPORT INFORMATION
  Report Type: 
  Country: None (occurrence: None)
  Receive Date: 20070427
  Receipt Date: 20070417
  Transmission Date: 20071010
  Serious: Yes (Other)
  Sender: FDA-Public Use
  Company Number: AU-PFIZER INC-2007031623

PATIENT
  Age: 87 Year
  Sex: Female

DRUGS (1)
  1. LIPITOR [Suspect]

REACTIONS (3)
  - FALL [None]
  - HIP FRACTURE [None]
  - MYALGIA [None]
